FAERS Safety Report 21255449 (Version 1)
Quarter: 2022Q3

REPORT INFORMATION
  Report Type: Spontaneous
  Country: US (occurrence: US)
  Receive Date: 20220825
  Receipt Date: 20220825
  Transmission Date: 20221026
  Serious: No
  Sender: FDA-Public Use
  Company Number: US-FreseniusKabi-FK202211193

PATIENT
  Age: 70 Year
  Sex: Male
  Weight: 107.5 kg

DRUGS (3)
  1. HEPARIN SODIUM [Suspect]
     Active Substance: HEPARIN SODIUM
     Indication: Anticoagulant therapy
     Dosage: 1,000 UNITS AT 0902
     Route: 042
     Dates: start: 20220804, end: 20220804
  2. HEPARIN SODIUM [Suspect]
     Active Substance: HEPARIN SODIUM
     Dosage: 4000 UNITS AT 0922
     Route: 042
     Dates: start: 20220804, end: 20220804
  3. HEPARIN SODIUM [Suspect]
     Active Substance: HEPARIN SODIUM
     Dosage: 3000 UNITS AT 0951
     Route: 042
     Dates: start: 20220804, end: 20220804

REACTIONS (1)
  - Therapeutic product effect decreased [Recovered/Resolved]

NARRATIVE: CASE EVENT DATE: 20220804
